FAERS Safety Report 18669577 (Version 1)
Quarter: 2020Q4

REPORT INFORMATION
  Report Type: Spontaneous
  Country: DE (occurrence: DE)
  Receive Date: 20201228
  Receipt Date: 20201228
  Transmission Date: 20210114
  Serious: Yes (Hospitalization)
  Sender: FDA-Public Use
  Company Number: NVSC2020DE338368

PATIENT
  Age: 28 Year
  Sex: Male

DRUGS (2)
  1. VOTUBIA [Suspect]
     Active Substance: EVEROLIMUS
     Dosage: UNK (ONCE IN THE MORNING)
     Route: 065
  2. VOTUBIA [Suspect]
     Active Substance: EVEROLIMUS
     Indication: TUBEROUS SCLEROSIS COMPLEX
     Dosage: UNK (ONCE IN THE MORNING)
     Route: 065

REACTIONS (2)
  - Epilepsy [Recovered/Resolved]
  - Drug intolerance [Recovered/Resolved]
